FAERS Safety Report 5194559-7 (Version None)
Quarter: 2006Q4

REPORT INFORMATION
  Report Type: 
  Country: None (occurrence: None)
  Receive Date: 20061221
  Receipt Date: 20061213
  Transmission Date: 20070319
  Serious: Yes (Hospitalization)
  Sender: FDA-Public Use
  Company Number: 8020842

PATIENT
  Sex: Female

DRUGS (2)
  1. KEPPRA [Suspect]
  2. OXCARBAZEPINE [Suspect]

REACTIONS (3)
  - CONVULSION [None]
  - HYPONATRAEMIA [None]
  - STATUS EPILEPTICUS [None]
